FAERS Safety Report 22232101 (Version 1)
Quarter: 2023Q2

REPORT INFORMATION
  Report Type: Report from Study
  Country: US (occurrence: US)
  Receive Date: 20230420
  Receipt Date: 20230420
  Transmission Date: 20230722
  Serious: Yes (Hospitalization, Other)
  Sender: FDA-Public Use
  Company Number: US-PTx-2022000104

PATIENT
  Sex: Male

DRUGS (1)
  1. INVESTIGATIONAL PRODUCT [Suspect]
     Active Substance: INVESTIGATIONAL PRODUCT
     Indication: Peripheral arterial occlusive disease
     Dosage: 500MCG/DAY SC (3 TIMES/WEEK FOR 3 WEEKS); CONCENTRATION = 250MCG/ML
     Route: 058

REACTIONS (1)
  - Acute myocardial infarction [Unknown]

NARRATIVE: CASE EVENT DATE: 20191210
